FAERS Safety Report 10343885 (Version 1)
Quarter: 2014Q3

REPORT INFORMATION
  Report Type: Report from Study
  Country: MX (occurrence: MX)
  Receive Date: 20140726
  Receipt Date: 20140726
  Transmission Date: 20150326
  Serious: Yes (Hospitalization, Other)
  Sender: FDA-Public Use
  Company Number: PHHY2013MX151541

PATIENT
  Age: 77 Year
  Sex: Female

DRUGS (2)
  1. MEMANTINA [Concomitant]
     Dosage: 1 UKN, DAILY
  2. ACLASTA [Suspect]
     Active Substance: ZOLEDRONIC ACID
     Indication: OSTEOPOROSIS
     Dosage: 5 MG/100ML, ANNUALLY
     Route: 042

REACTIONS (8)
  - Dementia Alzheimer^s type [Not Recovered/Not Resolved]
  - Joint injury [Recovering/Resolving]
  - Angina pectoris [Not Recovered/Not Resolved]
  - Fall [Recovered/Resolved]
  - Arrhythmia [Not Recovered/Not Resolved]
  - Limb injury [Recovering/Resolving]
  - Depression [Not Recovered/Not Resolved]
  - Injury [Recovering/Resolving]

NARRATIVE: CASE EVENT DATE: 20131219
